FAERS Safety Report 6689904-7 (Version None)
Quarter: 2010Q2

REPORT INFORMATION
  Report Type: 
  Country: None (occurrence: None)
  Receive Date: 20100421
  Receipt Date: 20100111
  Transmission Date: 20101027
  Serious: Yes (Other)
  Sender: FDA-Public Use
  Company Number: US-JNJCH-2010008570

PATIENT
  Sex: Female

DRUGS (1)
  1. ZYRTEC [Suspect]
     Indication: DRUG USE FOR UNKNOWN INDICATION
     Dosage: TEXT:UNKNOWN
     Route: 048

REACTIONS (3)
  - DEPRESSION [None]
  - MOOD SWINGS [None]
  - SUICIDAL IDEATION [None]
